FAERS Safety Report 16730729 (Version 1)
Quarter: 2019Q3

REPORT INFORMATION
  Report Type: Spontaneous
  Country: CH (occurrence: CH)
  Receive Date: 20190822
  Receipt Date: 20190822
  Transmission Date: 20191005
  Serious: Yes (Death, Hospitalization)
  Sender: FDA-Public Use
  Company Number: CH-PFIZER INC-2019356111

PATIENT
  Age: 48 Year
  Sex: Male

DRUGS (3)
  1. CONCOR [Concomitant]
     Active Substance: BISOPROLOL FUMARATE
     Dosage: 5 MG, 1X/DAY
     Route: 048
  2. MARCOUMAR [Suspect]
     Active Substance: PHENPROCOUMON
     Dosage: UNK
  3. FRAGMIN [Suspect]
     Active Substance: DALTEPARIN SODIUM
     Indication: INTERNATIONAL NORMALISED RATIO FLUCTUATION
     Dosage: UNK, AS NEEDED
     Route: 058

REACTIONS (4)
  - Cerebral haemorrhage [Fatal]
  - Coma [Fatal]
  - Subdural haematoma [Fatal]
  - Diarrhoea [Fatal]

NARRATIVE: CASE EVENT DATE: 201908
